FAERS Safety Report 8308978-0 (Version None)
Quarter: 2012Q1

REPORT INFORMATION
  Report Type: 
  Country: None (occurrence: None)
  Receive Date: 20120327
  Receipt Date: 20110418
  Transmission Date: 20120608
  Serious: Yes (Other)
  Sender: FDA-Public Use
  Company Number: PHHY2011US14836

PATIENT
  Age: 67 Year
  Sex: Female

DRUGS (2)
  1. GLEEVEC [Suspect]
     Indication: CHRONIC MYELOID LEUKAEMIA
     Dosage: 200 MG, DAILY, ORAL
     Route: 048
     Dates: start: 20110218
  2. STATINS [Concomitant]

REACTIONS (7)
  - HYPERCALCAEMIA [None]
  - CHEST PAIN [None]
  - ABDOMINAL PAIN UPPER [None]
  - DRUG INTERACTION [None]
  - BACK PAIN [None]
  - PAIN [None]
  - ARTHRALGIA [None]
